FAERS Safety Report 7338793-6 (Version None)
Quarter: 2011Q1

REPORT INFORMATION
  Report Type: 
  Country: None (occurrence: None)
  Receive Date: 20110210
  Receipt Date: 20110103
  Transmission Date: 20110831
  Serious: No
  Sender: FDA-Public Use
  Company Number: 1000018013

PATIENT
  Age: 33 Year
  Sex: Male

DRUGS (7)
  1. SAVELLA [Suspect]
     Indication: NEURALGIA
     Dosage: 12.5 MG (12.5 MG, 1 IN 1 D), ORAL
     Route: 048
     Dates: start: 20101201, end: 20101201
  2. SAVELLA [Suspect]
     Indication: NEURALGIA
     Dosage: SEE IMAGE
     Route: 048
     Dates: start: 20101101, end: 20101101
  3. SAVELLA [Suspect]
     Indication: NEURALGIA
     Dosage: SEE IMAGE
     Route: 048
     Dates: start: 20101101, end: 20101101
  4. SAVELLA [Suspect]
     Indication: NEURALGIA
     Dosage: SEE IMAGE
     Route: 048
     Dates: start: 20101201, end: 20101201
  5. SAVELLA [Suspect]
     Indication: NEURALGIA
     Dosage: SEE IMAGE
     Route: 048
     Dates: start: 20101101, end: 20101101
  6. SAVELLA [Suspect]
     Indication: NEURALGIA
     Dosage: SEE IMAGE
     Route: 048
     Dates: start: 20101101, end: 20101101
  7. SAVELLA [Suspect]
     Indication: NEURALGIA
     Dosage: SEE IMAGE
     Route: 048
     Dates: start: 20101201, end: 20101201

REACTIONS (3)
  - PROSTATIC PAIN [None]
  - URINARY HESITATION [None]
  - PROSTATIC DISORDER [None]
